FAERS Safety Report 17222161 (Version 1)
Quarter: 2020Q1

REPORT INFORMATION
  Report Type: Spontaneous
  Country: GB (occurrence: GB)
  Receive Date: 20200101
  Receipt Date: 20200101
  Transmission Date: 20200409
  Serious: Yes (Disabling, Other)
  Sender: FDA-Public Use
  Company Number: GB-TEVA-2019-GB-1160196

PATIENT
  Age: 84 Year
  Sex: Female
  Weight: 71 kg

DRUGS (29)
  1. CARBOMER 980 [Concomitant]
     Active Substance: CARBOMER HOMOPOLYMER TYPE C (ALLYL PENTAERYTHRITOL CROSSLINKED)
  2. LANSOPRAZOLE. [Concomitant]
     Active Substance: LANSOPRAZOLE
  3. DOXYCYCLINE. [Concomitant]
     Active Substance: DOXYCYCLINE
  4. FLUCLOXACILLIN SODIUM [Concomitant]
     Active Substance: FLUCLOXACILLIN SODIUM
  5. FUCIBET [Concomitant]
  6. CO-AMOXICLAV [Concomitant]
     Active Substance: AMOXICILLIN\CLAVULANATE POTASSIUM
  7. VANCOMYCIN [Suspect]
     Active Substance: VANCOMYCIN
     Indication: SEPSIS
     Dosage: 500 MG
     Route: 042
     Dates: start: 20191112, end: 20191126
  8. CLOPIDOGREL [Concomitant]
     Active Substance: CLOPIDOGREL BISULFATE
  9. HEPARIN [Concomitant]
     Active Substance: HEPARIN SODIUM
  10. DIGOXIN. [Concomitant]
     Active Substance: DIGOXIN
  11. AMLODIPINE [Concomitant]
     Active Substance: AMLODIPINE BESYLATE
  12. TAZOCIN [Concomitant]
     Active Substance: PIPERACILLIN SODIUM\TAZOBACTAM SODIUM
  13. METOCLOPRAMIDE. [Concomitant]
     Active Substance: METOCLOPRAMIDE
  14. PARACETAMOL [Concomitant]
     Active Substance: ACETAMINOPHEN
  15. DERMOL [Concomitant]
     Active Substance: BENZALKONIUM CHLORIDE\CHLORHEXIDINE HYDROCHLORIDE\ISOPROPYL MYRISTATE\PARAFFIN
  16. MEROPENEM. [Concomitant]
     Active Substance: MEROPENEM
  17. OPTREX CHLORAMPHENICOL [Concomitant]
  18. ERYTHROMYCIN. [Concomitant]
     Active Substance: ERYTHROMYCIN
  19. BUMETANIDE. [Concomitant]
     Active Substance: BUMETANIDE
  20. NYSTATIN. [Concomitant]
     Active Substance: NYSTATIN
  21. DIAZEPAM. [Concomitant]
     Active Substance: DIAZEPAM
  22. QUININE SULFATE. [Concomitant]
     Active Substance: QUININE SULFATE
  23. PREDNISOLONE. [Concomitant]
     Active Substance: PREDNISOLONE
  24. CLOTRIMAZOLE. [Concomitant]
     Active Substance: CLOTRIMAZOLE
  25. DANAPAROID SODIUM [Concomitant]
     Active Substance: DANAPAROID SODIUM
  26. BISOPROLOL FUMARATE. [Concomitant]
     Active Substance: BISOPROLOL FUMARATE
  27. LOPERAMIDE HYDROCHLORIDE. [Concomitant]
     Active Substance: LOPERAMIDE HYDROCHLORIDE
  28. BEZAFIBRATE [Concomitant]
     Active Substance: BEZAFIBRATE
  29. DALTEPARIN [Concomitant]
     Active Substance: DALTEPARIN

REACTIONS (2)
  - Conjunctivitis [Unknown]
  - Stevens-Johnson syndrome [Recovering/Resolving]

NARRATIVE: CASE EVENT DATE: 20191124
